FAERS Safety Report 18889099 (Version 3)
Quarter: 2021Q1

REPORT INFORMATION
  Report Type: Report from Study
  Country: DE (occurrence: DE)
  Receive Date: 20210212
  Receipt Date: 20210219
  Transmission Date: 20210420
  Serious: Yes (Hospitalization)
  Sender: FDA-Public Use
  Company Number: BE-REGENERON PHARMACEUTICALS, INC.-2021-23036

PATIENT

DRUGS (8)
  1. SAR439459 [Suspect]
     Active Substance: SAR-439459
     Indication: MALIGNANT MELANOMA STAGE II
     Dosage: UNK UNK, Q3W
     Route: 042
     Dates: start: 20201021, end: 20201021
  2. CEMIPLIMAB [Suspect]
     Active Substance: CEMIPLIMAB
     Indication: MALIGNANT MELANOMA STAGE II
     Dosage: 350 MG, Q3W
     Route: 042
     Dates: start: 20201021, end: 20201021
  3. TANNOSYNT [Concomitant]
     Indication: PRODUCT USED FOR UNKNOWN INDICATION
     Dosage: TOTAL DAILY DOSE: 2 %
     Route: 061
     Dates: start: 20201124, end: 20210112
  4. CEMIPLIMAB [Suspect]
     Active Substance: CEMIPLIMAB
     Dosage: 350 MG, Q3W
     Route: 042
     Dates: start: 20201202, end: 20201202
  5. SAR439459 [Suspect]
     Active Substance: SAR-439459
     Dosage: 22.5 MG/KG, Q3W
     Route: 042
     Dates: start: 20201202, end: 20201202
  6. HAMETUM                            /01376401/ [Concomitant]
     Indication: PRODUCT USED FOR UNKNOWN INDICATION
     Dosage: TOTAL DAILY DOSE: 62.5 OTHER
     Route: 061
     Dates: start: 20201028
  7. HYLO COMOD [Concomitant]
     Active Substance: HYALURONATE SODIUM
     Indication: PRODUCT USED FOR UNKNOWN INDICATION
     Dosage: TOTAL DAILY DOSE: 1 OTHER
     Route: 047
     Dates: start: 20201110
  8. TAVEGIL                            /00137201/ [Concomitant]
     Active Substance: CLEMASTINE FUMARATE
     Indication: PRODUCT USED FOR UNKNOWN INDICATION
     Dosage: START TIME: 09:15, TOTAL DAILY DOSE: 2 MG
     Route: 042
     Dates: start: 20201202, end: 20201202

REACTIONS (1)
  - Immune-mediated dermatitis [Not Recovered/Not Resolved]

NARRATIVE: CASE EVENT DATE: 20201202
